FAERS Safety Report 6664791-1 (Version None)
Quarter: 2010Q1

REPORT INFORMATION
  Report Type: 
  Country: None (occurrence: None)
  Receive Date: 20100330
  Receipt Date: 20100329
  Transmission Date: 20100710
  Serious: Yes (Death, Hospitalization)
  Sender: FDA-Public Use
  Company Number: 8046518

PATIENT
  Sex: Male
  Weight: 66 kg

DRUGS (9)
  1. CERTOLIZUMAB PREGOL (CERTOLIZUMAB PEGOL) [Suspect]
     Indication: RHEUMATOID ARTHRITIS
     Dosage: 200 MG 1X/2 WEEKS SUBCUTANEOUS), (400 MG 1X/2 WEEKS, -NR OF DOSES: 39 SUBCUTANEOUS), (200 MG 1X/2 W
     Route: 058
     Dates: start: 20050629, end: 20060613
  2. CERTOLIZUMAB PREGOL (CERTOLIZUMAB PEGOL) [Suspect]
     Indication: RHEUMATOID ARTHRITIS
     Dosage: 200 MG 1X/2 WEEKS SUBCUTANEOUS), (400 MG 1X/2 WEEKS, -NR OF DOSES: 39 SUBCUTANEOUS), (200 MG 1X/2 W
     Route: 058
     Dates: start: 20060628, end: 20080219
  3. CERTOLIZUMAB PREGOL (CERTOLIZUMAB PEGOL) [Suspect]
     Indication: RHEUMATOID ARTHRITIS
     Dosage: 200 MG 1X/2 WEEKS SUBCUTANEOUS), (400 MG 1X/2 WEEKS, -NR OF DOSES: 39 SUBCUTANEOUS), (200 MG 1X/2 W
     Route: 058
     Dates: start: 20080220, end: 20090602
  4. METHOTREXATE [Concomitant]
  5. FOLIC ACID [Concomitant]
  6. ENALAPRIL MALEATE [Concomitant]
  7. HYPOTHIAZID [Concomitant]
  8. PARACETAMOL [Concomitant]
  9. PYRIDOXINE HCL [Concomitant]

REACTIONS (24)
  - ASCITES [None]
  - CHILLS [None]
  - COLON CANCER METASTATIC [None]
  - CONTUSION [None]
  - DENTAL CARIES [None]
  - EMPHYSEMA [None]
  - GALLBLADDER DISORDER [None]
  - GASTRIC MUCOSAL HYPERTROPHY [None]
  - GASTRITIS [None]
  - HEADACHE [None]
  - HELICOBACTER INFECTION [None]
  - HEPATIC FAILURE [None]
  - INDURATION [None]
  - INFLUENZA [None]
  - LUNG DISORDER [None]
  - METAPLASIA [None]
  - METASTASES TO LIVER [None]
  - NASOPHARYNGITIS [None]
  - NIGHT SWEATS [None]
  - PROSTATIC DISORDER [None]
  - PULMONARY FIBROSIS [None]
  - PYREXIA [None]
  - SPLENOMEGALY [None]
  - WEIGHT DECREASED [None]
